FAERS Safety Report 22242973 (Version 6)
Quarter: 2023Q4

REPORT INFORMATION
  Report Type: Spontaneous
  Country: CA (occurrence: CA)
  Receive Date: 20230424
  Receipt Date: 20231030
  Transmission Date: 20240109
  Serious: Yes (Hospitalization, Other)
  Sender: FDA-Public Use
  Company Number: CA-PFIZER INC-202200850939

PATIENT
  Age: 34 Year
  Sex: Female

DRUGS (22)
  1. ABRILADA [Suspect]
     Active Substance: ADALIMUMAB-AFZB
     Indication: Psoriatic arthropathy
     Dosage: 40 MG, WEEKLY (EVERY 7 DAYS)
     Route: 058
     Dates: start: 20220622
  2. ATIVAN [Concomitant]
     Active Substance: LORAZEPAM
     Dosage: 1 DF
  3. AMITRIPTYLINE [Concomitant]
     Active Substance: AMITRIPTYLINE
     Dosage: 1 DF
  4. BUPRENORPHINE [Concomitant]
     Active Substance: BUPRENORPHINE
     Dosage: 1 DF
  5. CABERGOLINE [Concomitant]
     Active Substance: CABERGOLINE
     Dosage: 1 DF
  6. CLONAZEPAM [Concomitant]
     Active Substance: CLONAZEPAM
     Dosage: 1 DF
  7. CYCLOBENZAPRINE [Concomitant]
     Active Substance: CYCLOBENZAPRINE
     Dosage: 1 DF
  8. DILAUDID [Concomitant]
     Active Substance: HYDROMORPHONE HYDROCHLORIDE
     Dosage: 1 DF
  9. DESOGESTREL\ETHINYL ESTRADIOL [Concomitant]
     Active Substance: DESOGESTREL\ETHINYL ESTRADIOL
     Dosage: 1 DF
  10. GLUCAGON [Concomitant]
     Active Substance: GLUCAGON\GLUCAGON HYDROCHLORIDE\WATER
     Dosage: 1 DF
  11. HYDROCORTISONE [Concomitant]
     Active Substance: HYDROCORTISONE
     Dosage: UNK 1% CREAM
     Route: 061
  12. HYDROCORTISONE [Concomitant]
     Active Substance: HYDROCORTISONE
     Dosage: 1 DF
  13. HYDROMORPHONE [Concomitant]
     Active Substance: HYDROMORPHONE
     Dosage: 1 DF
  14. INSULIN ASPART [Concomitant]
     Active Substance: INSULIN ASPART
     Dosage: 100U/ML INJ.PE
  15. INSULIN DEGLUDEC [Concomitant]
     Active Substance: INSULIN DEGLUDEC
     Dosage: 1 DF, UNK  200U/ML INJ.PEN
  16. IVABRADINE [Concomitant]
     Active Substance: IVABRADINE
     Dosage: 1 DF
  17. ONDANSETRON [Concomitant]
     Active Substance: ONDANSETRON
     Dosage: 1 DF
  18. OCTREOTIDE [Concomitant]
     Active Substance: OCTREOTIDE
     Dosage: 1 DF
  19. PIOGLITAZONE [Concomitant]
     Active Substance: PIOGLITAZONE
     Dosage: 1 DF
  20. PRAMOXINE [Concomitant]
     Active Substance: PRAMOXINE
     Dosage: UNK 1% CREAM
     Route: 061
  21. SEMAGLUTIDE [Concomitant]
     Active Substance: SEMAGLUTIDE
     Dosage: 1 DF, UNK 4MG/3ML INJ.PEN
  22. VENLAFAXINE [Concomitant]
     Active Substance: VENLAFAXINE HYDROCHLORIDE
     Dosage: 1 DF

REACTIONS (11)
  - Neoplasm malignant [Unknown]
  - Hepatic cancer metastatic [Unknown]
  - Therapeutic response delayed [Unknown]
  - Off label use [Unknown]
  - Pain in extremity [Unknown]
  - Injection site bruising [Unknown]
  - Psoriasis [Recovering/Resolving]
  - Pain [Unknown]
  - Asthenia [Unknown]
  - Thinking abnormal [Unknown]
  - Fatigue [Not Recovered/Not Resolved]

NARRATIVE: CASE EVENT DATE: 20220101
